FAERS Safety Report 6189724-6 (Version None)
Quarter: 2009Q2

REPORT INFORMATION
  Report Type: 
  Country: None (occurrence: None)
  Receive Date: 20090514
  Receipt Date: 20090504
  Transmission Date: 20091009
  Serious: Yes (Other)
  Sender: FDA-Public Use
  Company Number: US-ROCHE-631312

PATIENT
  Age: 62 Year
  Sex: Female

DRUGS (3)
  1. BONIVA [Suspect]
     Indication: DRUG USE FOR UNKNOWN INDICATION
     Route: 065
     Dates: start: 20081101
  2. NEXIUM [Concomitant]
  3. METAMUCIL [Concomitant]

REACTIONS (2)
  - RADIOTHERAPY [None]
  - TOOTH EXTRACTION [None]
